FAERS Safety Report 12518740 (Version 2)
Quarter: 2016Q3

REPORT INFORMATION
  Report Type: Spontaneous
  Country: FR (occurrence: FR)
  Receive Date: 20160630
  Receipt Date: 20160727
  Transmission Date: 20161109
  Serious: Yes (Other)
  Sender: FDA-Public Use
  Company Number: FR-TEVA-670499ISR

PATIENT
  Age: 65 Year
  Sex: Male

DRUGS (4)
  1. 5-FLUOROURACIL [Suspect]
     Active Substance: FLUOROURACIL
     Dosage: FIRST COURSE OF FOLFIRI PROTOCOL, FULL DOSE CONTINUOUSLY
  2. 5-FLUOROURACIL [Suspect]
     Active Substance: FLUOROURACIL
     Indication: OESOPHAGEAL ADENOCARCINOMA
     Dosage: 4 COURSES OF HERSKOVIC PROTOCOL
  3. IRINOTECAN [Suspect]
     Active Substance: IRINOTECAN
     Indication: OESOPHAGEAL ADENOCARCINOMA
     Dosage: FIRST COURSE OF FOLFIRI PROTOCOL
  4. 5-FLUOROURACIL [Suspect]
     Active Substance: FLUOROURACIL
     Dosage: 2 COURSES OF HERSKOVIC PROTOCOL
     Dates: start: 201101, end: 201103

REACTIONS (2)
  - Febrile neutropenia [Unknown]
  - Alopecia [Unknown]
